FAERS Safety Report 4954562-6 (Version None)
Quarter: 2006Q1

REPORT INFORMATION
  Report Type: 
  Country: None (occurrence: None)
  Receive Date: 20060322
  Receipt Date: 20060310
  Transmission Date: 20060701
  Serious: Yes (Hospitalization)
  Sender: FDA-Public Use
  Company Number: 2006RR-01776

PATIENT
  Age: 44 Year
  Sex: Female

DRUGS (2)
  1. LISINOPRIL [Suspect]
     Indication: HYPERTENSION
     Dosage: 10 MG, QD
     Dates: start: 20040101, end: 20041005
  2. VALSARTAN [Suspect]
     Indication: HYPERTENSION
     Dosage: 80 MG, QD
     Dates: start: 20040101, end: 20041005

REACTIONS (7)
  - ANGIONEUROTIC OEDEMA [None]
  - ASCITES [None]
  - DRUG INTERACTION [None]
  - GASTROINTESTINAL DISORDER [None]
  - OEDEMA [None]
  - PANCREATIC DISORDER [None]
  - PYREXIA [None]
